FAERS Safety Report 4471290-4 (Version None)
Quarter: 2004Q4

REPORT INFORMATION
  Report Type: 
  Country: None (occurrence: None)
  Receive Date: 20041011
  Receipt Date: 20041001
  Transmission Date: 20050328
  Serious: Yes (Hospitalization)
  Sender: FDA-Public Use
  Company Number: US-MERCK-0410USA00246

PATIENT
  Sex: Female

DRUGS (2)
  1. CELEBREX [Concomitant]
     Route: 065
     Dates: start: 20040201, end: 20040901
  2. VIOXX [Suspect]
     Route: 048
     Dates: start: 20040901, end: 20040929

REACTIONS (2)
  - NERVOUS SYSTEM DISORDER [None]
  - OEDEMA PERIPHERAL [None]
